FAERS Safety Report 8381885-3 (Version None)
Quarter: 2012Q1

REPORT INFORMATION
  Report Type: 
  Country: None (occurrence: None)
  Receive Date: 20120323
  Receipt Date: 20110412
  Transmission Date: 20120608
  Serious: Yes (Hospitalization)
  Sender: FDA-Public Use
  Company Number: 163-21880-11042032

PATIENT
  Age: 70 Year
  Sex: Male

DRUGS (3)
  1. BLOOD (BLOOD AND RELATED PRODUCTS) (INJECTION) [Concomitant]
  2. REVLIMID [Suspect]
     Indication: MULTIPLE MYELOMA
     Dosage: 10 MG, 1 IN 1 D, PO
     Route: 048
     Dates: start: 20100901
  3. REVLIMID [Suspect]
     Indication: MULTIPLE MYELOMA
     Dosage: 10 MG, 1 IN 1 D, PO
     Route: 048
     Dates: start: 20110201

REACTIONS (2)
  - PNEUMONIA [None]
  - BLOOD COUNT ABNORMAL [None]
